FAERS Safety Report 7129613-3 (Version None)
Quarter: 2010Q4

REPORT INFORMATION
  Report Type: 
  Country: None (occurrence: None)
  Receive Date: 20101130
  Receipt Date: 20101124
  Transmission Date: 20110411
  Serious: Yes (Hospitalization, Other)
  Sender: FDA-Public Use
  Company Number: PHHO2010DE16330

PATIENT
  Sex: Female
  Weight: 96 kg

DRUGS (7)
  1. AFINITOR [Suspect]
     Indication: BREAST CANCER
     Dosage: 5MG/DAY
     Route: 048
     Dates: start: 20100917, end: 20101022
  2. PACLITAXEL [Concomitant]
     Indication: BREAST CANCER
     Dosage: 159MG
     Route: 042
     Dates: start: 20100927, end: 20101011
  3. BEVACIZUMAB [Concomitant]
     Indication: BREAST CANCER
     Dosage: 1455MG
     Route: 042
     Dates: start: 20100621, end: 20100823
  4. EPIRUBICIN [Concomitant]
  5. CYCLOPHOSPHAMIDE [Concomitant]
     Indication: BREAST CANCER
     Dosage: 1194MG
     Route: 042
     Dates: start: 20100621, end: 20100823
  6. APROVEL [Concomitant]
  7. METFORMIN [Concomitant]

REACTIONS (3)
  - BLOOD GLUCOSE INCREASED [None]
  - OTITIS MEDIA [None]
  - VERTIGO [None]
